APPROVED DRUG PRODUCT: REGADENOSON
Active Ingredient: REGADENOSON
Strength: 0.4MG/5ML (0.08MG/ML)
Dosage Form/Route: SOLUTION;INTRAVENOUS
Application: A207320 | Product #001 | TE Code: AP
Applicant: GLAND PHARMA LTD
Approved: Jul 12, 2022 | RLD: No | RS: No | Type: RX